FAERS Safety Report 9469874 (Version 1)
Quarter: 2013Q3

REPORT INFORMATION
  Report Type: Spontaneous
  Country: US (occurrence: None)
  Receive Date: 20130820
  Receipt Date: 20130820
  Transmission Date: 20140515
  Serious: Yes (Hospitalization)
  Sender: FDA-Public Use
  Company Number: None

PATIENT
  Age: 76 Year
  Sex: Male
  Weight: 61.3 kg

DRUGS (1)
  1. BUMETANIDE [Suspect]
     Dosage: MG   PO?~11/02/2012 THRU N/A
     Route: 048
     Dates: start: 20121102

REACTIONS (9)
  - Weight decreased [None]
  - Muscular weakness [None]
  - Renal failure acute [None]
  - Urinary incontinence [None]
  - Polyuria [None]
  - Hyperkalaemia [None]
  - Hypertension [None]
  - Benign prostatic hyperplasia [None]
  - Dizziness [None]
